FAERS Safety Report 7022236 (Version 7)
Quarter: 2012Q4

REPORT INFORMATION
  Report Type: Report from Study
  Country: JP (occurrence: JP)
  Receive Date: 20090612
  Receipt Date: 20121102
  Transmission Date: 20130627
  Serious: Yes (Hospitalization)
  Sender: FDA-Public Use
  Company Number: PHHO2009JP06970

PATIENT
  Age: 26 Year
  Sex: Female
  Weight: 61 kg

DRUGS (16)
  1. EVEROLIMUS [Suspect]
     Indication: RENAL TRANSPLANT
     Dosage: 1.5 mg, daily
     Route: 048
     Dates: start: 20090211, end: 20090414
  2. EVEROLIMUS [Suspect]
     Dosage: 3.0 mg, daily
     Route: 048
     Dates: start: 20090415
  3. NEORAL [Suspect]
     Indication: RENAL TRANSPLANT
     Dosage: 160 mg, daily
     Route: 048
  4. DIOVAN [Suspect]
     Indication: HYPERTENSION
     Dosage: 80 mg, daily
     Route: 048
     Dates: start: 20090527, end: 20120405
  5. CORTICOSTEROIDS [Suspect]
     Indication: PROPHYLAXIS AGAINST TRANSPLANT REJECTION
  6. MEDROL [Suspect]
     Indication: RENAL TRANSPLANT
     Dosage: 2 mg
     Route: 048
     Dates: start: 20090210
  7. MEDROL [Suspect]
     Dosage: 4 mg
     Route: 048
  8. MEDROL [Suspect]
     Dosage: 2 mg
     Route: 048
     Dates: start: 20110224
  9. HIRUDOID [Suspect]
     Indication: RASH
     Dates: start: 20090501
  10. FAMOTIDINE [Concomitant]
     Indication: PROPHYLAXIS AGAINST GASTROINTESTINAL ULCER
     Dosage: 20 mg
     Route: 048
     Dates: start: 20090313
  11. SIMULECT [Concomitant]
     Indication: PROPHYLAXIS AGAINST TRANSPLANT REJECTION
  12. MAGLAX [Concomitant]
     Indication: CONSTIPATION
     Dosage: 500 mg, daily
     Route: 048
     Dates: start: 20090310
  13. SODIUM PICOSULFATE [Concomitant]
     Indication: CONSTIPATION
     Route: 048
     Dates: start: 20090216
  14. DIFFERIN [Concomitant]
     Indication: RASH
     Dates: start: 20090313
  15. POVIDONE IODINE [Concomitant]
     Indication: INFECTION PROPHYLAXIS
     Dates: start: 20090203
  16. FUROSEMIDE [Concomitant]
     Indication: ASCITES
     Dosage: 40 mg daily
     Route: 048
     Dates: start: 20090429

REACTIONS (3)
  - Transitional cell carcinoma [Recovering/Resolving]
  - Kidney transplant rejection [Recovering/Resolving]
  - Blood creatinine increased [Recovered/Resolved]
